FAERS Safety Report 12725196 (Version 1)
Quarter: 2016Q3

REPORT INFORMATION
  Report Type: Spontaneous
  Country: US (occurrence: US)
  Receive Date: 20160908
  Receipt Date: 20160908
  Transmission Date: 20161109
  Serious: Yes (Other)
  Sender: FDA-Public Use
  Company Number: US-PFIZER INC-2016417698

PATIENT
  Age: 56 Year
  Sex: Female

DRUGS (13)
  1. ACETAMINOPHEN. [Concomitant]
     Active Substance: ACETAMINOPHEN
     Dosage: 1300 MG, (TAKE 2 TABLET BY ORAL ROUTE EVERY 8 HOURS AS)
     Route: 048
  2. LINZESS [Concomitant]
     Active Substance: LINACLOTIDE
     Dosage: 290 UG, DAILY (TAKE 1 CAPSULE ON AN EMPTY STOMACH AT LEAST 30 MINUTES BEFORE 1ST MEAL OF THE DAY)
     Route: 048
     Dates: start: 20151125
  3. TYLENOL [Suspect]
     Active Substance: ACETAMINOPHEN
     Dosage: UNK
  4. FLONASE [Concomitant]
     Active Substance: FLUTICASONE PROPIONATE
     Dosage: UNK (50 MCG/ ACTUATION, SPRAY 2 BY NASAL ROUTE EVERY DAY)
     Route: 045
     Dates: start: 20160623
  5. TRAMADOL. [Suspect]
     Active Substance: TRAMADOL
     Dosage: 50 MG, AS NEEDED (TAKE ONE TO TWO TABLETS BY MOUTH EVERY 6 HOURS AS NEEDED, MAX DAILY DOSES 6 TABS)
     Route: 048
     Dates: start: 20160818
  6. OMEPRAZOLE. [Concomitant]
     Active Substance: OMEPRAZOLE
     Dosage: 20 MG, DAILY (TAKE 1CAPSULE EVERY DAY BEFORE A MEAL)
     Dates: start: 20160623
  7. VITAMIN D3 [Concomitant]
     Active Substance: CHOLECALCIFEROL
     Dosage: 1 DF, 1X/DAY (TAKE 1TABLET BY ORAL ROUTE ONCE FOR 1 DAY)
     Route: 048
  8. LUNESTA [Concomitant]
     Active Substance: ESZOPICLONE
     Dosage: 3 MG, 1X/DAY (TAKE 1TABLET BY ORAL ROUTE EVERY DAY AT BEDTIME)
     Route: 048
     Dates: start: 20160623
  9. CELEBREX [Suspect]
     Active Substance: CELECOXIB
     Indication: PAIN
     Dosage: 200 MG, 2X/DAY
  10. TIZANIDINE. [Concomitant]
     Active Substance: TIZANIDINE
     Dosage: 4 MG, AS NEEDED (TAKE ONE TABLET BY MOUTH EVERY 8 HOURS AS NEEDED)
     Route: 048
     Dates: start: 20160623
  11. VITAMIN B12 [Concomitant]
     Active Substance: CYANOCOBALAMIN
     Dosage: 100 UG, UNK
  12. VOLTAREN [Suspect]
     Active Substance: DICLOFENAC SODIUM
     Dosage: 2 G, 4X/DAY (1% GEL; SIG: APPLY 2 GRAMS TOPICALLY 4 TIMES DAILY TO AFFECTED AREA)
     Route: 061
     Dates: start: 20150610
  13. CELEBREX [Suspect]
     Active Substance: CELECOXIB
     Indication: ARTHRITIS
     Dosage: 200 MG, 1X/DAY

REACTIONS (20)
  - Drug effect incomplete [Unknown]
  - Nail hypertrophy [Unknown]
  - Cervical myelopathy [Unknown]
  - Dyspnoea [Unknown]
  - Rash [Unknown]
  - Depression [Unknown]
  - Constipation [Unknown]
  - Sciatica [Unknown]
  - Fatigue [Unknown]
  - Rosacea [Unknown]
  - Insomnia [Unknown]
  - Anxiety [Unknown]
  - Dry eye [Unknown]
  - Fall [Unknown]
  - Product use issue [Unknown]
  - Pain [Unknown]
  - Arthralgia [Unknown]
  - Gastrooesophageal reflux disease [Unknown]
  - Attention deficit/hyperactivity disorder [Unknown]
  - Fibromyalgia [Unknown]

NARRATIVE: CASE EVENT DATE: 20150504
